FAERS Safety Report 5534714-7 (Version None)
Quarter: 2007Q4

REPORT INFORMATION
  Report Type: 
  Country: None (occurrence: None)
  Receive Date: 20071130
  Receipt Date: 20071115
  Transmission Date: 20080405
  Serious: Yes (Other)
  Sender: FDA-Public Use
  Company Number: 40411

PATIENT
  Age: 44 Year
  Sex: Female
  Weight: 50.8029 kg

DRUGS (5)
  1. DICYCLOMINE HCL [Suspect]
     Indication: ABDOMINAL PAIN
     Dosage: 20 MG IV X1
     Route: 042
     Dates: start: 20070831
  2. EFFEXOR [Concomitant]
  3. PROTONIX [Concomitant]
  4. REGLAN [Concomitant]
  5. ZOFRAN 8MG [Concomitant]

REACTIONS (1)
  - MEDICATION ERROR [None]
